FAERS Safety Report 17517723 (Version 1)
Quarter: 2020Q1

REPORT INFORMATION
  Report Type: Spontaneous
  Country: US (occurrence: US)
  Receive Date: 20200309
  Receipt Date: 20200309
  Transmission Date: 20200409
  Serious: Yes (Other)
  Sender: FDA-Public Use
  Company Number: None

PATIENT
  Age: 52 Year
  Sex: Female
  Weight: 63 kg

DRUGS (1)
  1. OCEAN POTION SPORT SPF 50 [Suspect]
     Active Substance: AVOBENZONE\HOMOSALATE\OCTISALATE\OCTOCRYLENE
     Indication: PROPHYLAXIS AGAINST SOLAR RADIATION
     Route: 061
     Dates: start: 20191230, end: 20200102

REACTIONS (5)
  - Rash [None]
  - Application site rash [None]
  - Skin irritation [None]
  - Product formulation issue [None]
  - Rash erythematous [None]

NARRATIVE: CASE EVENT DATE: 20200102
